FAERS Safety Report 5402040-2 (Version None)
Quarter: 2007Q3

REPORT INFORMATION
  Report Type: 
  Country: None (occurrence: None)
  Receive Date: 20070727
  Receipt Date: 20070712
  Transmission Date: 20080115
  Serious: Yes (Hospitalization)
  Sender: FDA-Public Use
  Company Number: AZAFR200700237

PATIENT
  Age: 55 Year
  Sex: Male
  Weight: 100 kg

DRUGS (5)
  1. VIDAZA [Suspect]
     Indication: MYELODYSPLASTIC SYNDROME
     Dosage: 120 MG (DAILY X 5 DAYS), SUBCUTANEOUS
     Route: 058
     Dates: start: 20070521, end: 20070525
  2. PREVISCAN (FLUINDIONE) [Suspect]
     Indication: THROMBOSIS PROPHYLAXIS
     Dates: start: 20070401, end: 20070605
  3. PREVISCAN (FLUINDIONE) [Suspect]
     Indication: THROMBOSIS PROPHYLAXIS
     Dates: start: 20070611
  4. AMOXICILLIN [Suspect]
     Indication: PYREXIA
     Dates: start: 20070526, end: 20070604
  5. ATENOLOL [Concomitant]

REACTIONS (8)
  - BACTERIAL INFECTION [None]
  - CATHETER RELATED INFECTION [None]
  - CULTURE URINE POSITIVE [None]
  - DRUG INTERACTION [None]
  - ESCHERICHIA INFECTION [None]
  - INTERNATIONAL NORMALISED RATIO INCREASED [None]
  - PNEUMONIA KLEBSIELLA [None]
  - SEPSIS [None]
